FAERS Safety Report 7770440-1 (Version None)
Quarter: 2011Q3

REPORT INFORMATION
  Report Type: 
  Country: None (occurrence: None)
  Receive Date: 20110922
  Receipt Date: 20110207
  Transmission Date: 20111222
  Serious: No
  Sender: FDA-Public Use
  Company Number: US-ASTRAZENECA-2011SE06842

PATIENT
  Age: 35 Year
  Sex: Male

DRUGS (6)
  1. AMBIEN [Concomitant]
  2. XANAX [Concomitant]
  3. SUBOXONE [Concomitant]
  4. LAMICTAL [Concomitant]
  5. SEROQUEL [Suspect]
     Indication: BIPOLAR DISORDER
     Dosage: 100MG TWO TIMES A DAY AND 2 TABLETS AT NIGHT, TOTAL DOSE OF 400MG
     Route: 048
     Dates: start: 20090101, end: 20110201
  6. KLONOPIN [Concomitant]

REACTIONS (7)
  - NAUSEA [None]
  - DIZZINESS [None]
  - DRUG WITHDRAWAL SYNDROME [None]
  - HEADACHE [None]
  - TREMOR [None]
  - DRUG DOSE OMISSION [None]
  - INSOMNIA [None]
